FAERS Safety Report 5530333-7 (Version None)
Quarter: 2007Q4

REPORT INFORMATION
  Report Type: 
  Country: None (occurrence: None)
  Receive Date: 20071130
  Receipt Date: 20071119
  Transmission Date: 20080405
  Serious: No
  Sender: FDA-Public Use
  Company Number: A0685294A

PATIENT
  Age: 55 Year
  Sex: Female

DRUGS (4)
  1. AUGMENTIN '250' [Suspect]
     Indication: DRUG USE FOR UNKNOWN INDICATION
     Route: 048
     Dates: end: 19990101
  2. AVANDAMET [Suspect]
     Route: 048
     Dates: start: 20070101, end: 20070517
  3. MOBIC [Concomitant]
  4. AMBIEN [Concomitant]

REACTIONS (4)
  - ABDOMINAL DISTENSION [None]
  - ADVERSE EVENT [None]
  - OEDEMA [None]
  - WEIGHT INCREASED [None]
